FAERS Safety Report 4499872-4 (Version None)
Quarter: 2004Q4

REPORT INFORMATION
  Report Type: 
  Country: None (occurrence: None)
  Receive Date: 20041108
  Receipt Date: 20041021
  Transmission Date: 20050328
  Serious: Yes (Death, Life-Threatening)
  Sender: FDA-Public Use
  Company Number: DSA_25114_2004

PATIENT
  Age: 76 Year
  Sex: Male

DRUGS (14)
  1. RENIVACE [Suspect]
     Dosage: 1.25 MG Q DAY PO
     Route: 048
     Dates: start: 20040918, end: 20040921
  2. VANCOMYCIN HYDROCHLORIDE [Suspect]
     Dosage: 1 G Q DAY IV
     Route: 042
     Dates: start: 20040915, end: 20040921
  3. GASTER [Concomitant]
  4. MULTIVITAMIN ADDITIVE [Concomitant]
  5. BISOLVON [Concomitant]
  6. DIPRIVAN [Concomitant]
  7. KAKODIN D [Concomitant]
  8. DOPASTON [Concomitant]
  9. CIPROXAN [Concomitant]
  10. SAMET [Concomitant]
  11. FRAGMIN [Concomitant]
  12. FOSMICIN [Concomitant]
  13. OMEPRAL [Concomitant]
  14. BLUTAL [Concomitant]

REACTIONS (3)
  - INTERSTITIAL LUNG DISEASE [None]
  - RALES [None]
  - RESPIRATORY FAILURE [None]
